FAERS Safety Report 7685817-2 (Version None)
Quarter: 2011Q3

REPORT INFORMATION
  Report Type: 
  Country: None (occurrence: None)
  Receive Date: 20110815
  Receipt Date: 20110815
  Transmission Date: 20111222
  Serious: Yes (Other)
  Sender: FDA-Public Use
  Company Number: None

PATIENT
  Age: 39 Year
  Sex: Female
  Weight: 90.718 kg

DRUGS (2)
  1. CYMBALTA [Suspect]
     Indication: DEPRESSION
     Dosage: ONE CAPSULE
     Route: 048
     Dates: start: 20090101, end: 20110330
  2. CYMBALTA [Concomitant]
     Dosage: ONE CAPSULE
     Route: 048
     Dates: start: 20110401, end: 20110801

REACTIONS (4)
  - VERTIGO [None]
  - AGITATION [None]
  - NAUSEA [None]
  - DRUG WITHDRAWAL SYNDROME [None]
